FAERS Safety Report 4776820-0 (Version None)
Quarter: 2005Q3

REPORT INFORMATION
  Report Type: 
  Country: None (occurrence: None)
  Receive Date: 20050914
  Receipt Date: 20040907
  Transmission Date: 20060218
  Serious: Yes (Death)
  Sender: FDA-Public Use
  Company Number: 163-20785-04090235

PATIENT
  Age: 69 Year
  Sex: Female

DRUGS (2)
  1. THALOMID [Suspect]
     Indication: MULTIPLE MYELOMA
     Dosage: 200 MG, QD, ORAL
     Route: 048
     Dates: start: 20040205, end: 20040416
  2. STEROID THERAPY NOS [Suspect]
     Indication: MULTIPLE MYELOMA

REACTIONS (4)
  - DEATH [None]
  - DISEASE PROGRESSION [None]
  - NERVE INJURY [None]
  - PNEUMONIA [None]
